FAERS Safety Report 25240799 (Version 3)
Quarter: 2025Q2

REPORT INFORMATION
  Report Type: Spontaneous
  Country: GB (occurrence: IN)
  Receive Date: 20250425
  Receipt Date: 20250509
  Transmission Date: 20250716
  Serious: Yes (Other)
  Sender: MERCK SHARP & DOHME LLC
  Company Number: GB-009507513-2275270

PATIENT
  Age: 65 Year
  Sex: Female

DRUGS (2)
  1. PEMBROLIZUMAB [Suspect]
     Active Substance: PEMBROLIZUMAB
     Indication: Clear cell renal cell carcinoma
     Dosage: 200 MG, EVERY 3 WEEKS (EVERY 21 DAYS)
     Route: 042
     Dates: start: 202405, end: 2025
  2. AXITINIB [Interacting]
     Active Substance: AXITINIB
     Indication: Clear cell renal cell carcinoma
     Route: 048
     Dates: start: 202405

REACTIONS (6)
  - Pemphigoid [Not Recovered/Not Resolved]
  - Oedema peripheral [Unknown]
  - Transfusion [Unknown]
  - Weight fluctuation [Unknown]
  - Swelling face [Unknown]
  - Drug interaction [Unknown]

NARRATIVE: CASE EVENT DATE: 20250101
